FAERS Safety Report 16401705 (Version 2)
Quarter: 2019Q3

REPORT INFORMATION
  Report Type: Spontaneous
  Country: JP (occurrence: JP)
  Receive Date: 20190606
  Receipt Date: 20190724
  Transmission Date: 20191004
  Serious: Yes (Hospitalization, Other)
  Sender: FDA-Public Use
  Company Number: JP-TAKEDA-2019TJP012465

PATIENT
  Age: 39 Year
  Sex: Male
  Weight: 76 kg

DRUGS (3)
  1. DEPAS [Concomitant]
     Indication: SOMATIC SYMPTOM DISORDER
     Dosage: 1 MILLIGRAM, TID
     Route: 048
     Dates: start: 2015
  2. ENTYVIO [Suspect]
     Active Substance: VEDOLIZUMAB
     Indication: COLITIS ULCERATIVE
     Dosage: 300 MILLIGRAM
     Route: 041
     Dates: start: 20181211
  3. BIOFERMIN                          /07746301/ [Concomitant]
     Indication: COLITIS ULCERATIVE
     Dosage: 2 DOSAGE FORM, TID
     Route: 048
     Dates: start: 2015

REACTIONS (1)
  - Epilepsy [Recovered/Resolved]

NARRATIVE: CASE EVENT DATE: 20190531
